FAERS Safety Report 5659769-0 (Version None)
Quarter: 2008Q1

REPORT INFORMATION
  Report Type: 
  Country: None (occurrence: None)
  Receive Date: 20080311
  Receipt Date: 20070712
  Transmission Date: 20080703
  Serious: No
  Sender: FDA-Public Use
  Company Number: US-BAYER-200712234BCC

PATIENT
  Age: 81 Year
  Sex: Female
  Weight: 65 kg

DRUGS (12)
  1. ALEVE [Suspect]
     Indication: ARTHRITIS
     Dosage: UNIT DOSE: 220 MG
     Route: 048
     Dates: start: 20070601
  2. AMLODIPINE BESYLATE AND BENAZEPRIL HCL [Concomitant]
  3. ACTONEL [Concomitant]
  4. TOPROL-XL [Concomitant]
  5. ZETIA [Concomitant]
  6. HYDROCHLOROTHIAZIDE [Concomitant]
  7. ESTRACE [Concomitant]
  8. CALCIUM WITH VITAMIN D [Concomitant]
  9. STORE BRAND ASPIRIN [Concomitant]
  10. SENSORY SENIOR MULTI-VITAMIN [Concomitant]
  11. AMBIEN [Concomitant]
  12. OMEGA [Concomitant]

REACTIONS (1)
  - RASH [None]
